FAERS Safety Report 5031232-X (Version None)
Quarter: 2006Q2

REPORT INFORMATION
  Report Type: 
  Country: None (occurrence: None)
  Receive Date: 20060621
  Receipt Date: 20060503
  Transmission Date: 20061013
  Serious: No
  Sender: FDA-Public Use
  Company Number: US-GLAXOSMITHKLINE-A0604241A

PATIENT
  Sex: Female

DRUGS (1)
  1. AVANDARYL [Suspect]
     Dosage: 1TAB PER DAY
     Route: 048
     Dates: start: 20060503

REACTIONS (2)
  - DIZZINESS [None]
  - PARAESTHESIA ORAL [None]
